FAERS Safety Report 17924892 (Version 1)
Quarter: 2020Q2

REPORT INFORMATION
  Report Type: Spontaneous
  Country: US (occurrence: US)
  Receive Date: 20200622
  Receipt Date: 20200622
  Transmission Date: 20200714
  Serious: Yes (Other)
  Sender: FDA-Public Use
  Company Number: US-GILEAD-2020-0474386

PATIENT
  Age: 54 Year
  Sex: Female
  Weight: 78.4 kg

DRUGS (13)
  1. OXYMETAZOLINE [Concomitant]
     Active Substance: OXYMETAZOLINE
  2. REMDESIVIR. [Suspect]
     Active Substance: REMDESIVIR
     Indication: COVID-19 PNEUMONIA
     Dosage: 100 MG, QD
     Route: 042
     Dates: start: 20200617, end: 20200618
  3. TOCILIZUMAB. [Concomitant]
     Active Substance: TOCILIZUMAB
  4. INSULIN LISPRO [Concomitant]
     Active Substance: INSULIN LISPRO
  5. LEVOTHYROXINE. [Concomitant]
     Active Substance: LEVOTHYROXINE
  6. ALBUTEROL HFA [Concomitant]
     Active Substance: ALBUTEROL SULFATE
  7. DEXTROMETHORPHAN HBR + GUAIFENESIN [Concomitant]
     Active Substance: DEXTROMETHORPHAN HYDROBROMIDE\GUAIFENESIN
  8. ENOXAPARIN [Concomitant]
     Active Substance: ENOXAPARIN
  9. BENZONATATE. [Concomitant]
     Active Substance: BENZONATATE
  10. METFORMIN [Concomitant]
     Active Substance: METFORMIN HYDROCHLORIDE
  11. ZINC SULFATE. [Concomitant]
     Active Substance: ZINC SULFATE
  12. ASCORBIC ACID. [Concomitant]
     Active Substance: ASCORBIC ACID
  13. ACETAMINOPHEN. [Concomitant]
     Active Substance: ACETAMINOPHEN
     Dosage: UNK

REACTIONS (1)
  - Transaminases increased [Unknown]

NARRATIVE: CASE EVENT DATE: 20200617
